FAERS Safety Report 15486586 (Version 1)
Quarter: 2018Q4

REPORT INFORMATION
  Report Type: Spontaneous
  Country: ES (occurrence: ES)
  Receive Date: 20181011
  Receipt Date: 20181011
  Transmission Date: 20190205
  Serious: Yes (Hospitalization)
  Sender: FDA-Public Use
  Company Number: ES-TEVA-2018-ES-963168

PATIENT
  Age: 59 Year
  Sex: Female

DRUGS (1)
  1. AMOXICILINA-CLAVULANICO [Suspect]
     Active Substance: AMOXICILLIN\CLAVULANATE POTASSIUM
     Route: 065
     Dates: start: 20180401, end: 20180410

REACTIONS (1)
  - Hepatitis cholestatic [Unknown]

NARRATIVE: CASE EVENT DATE: 20180410
